FAERS Safety Report 9836669 (Version 1)
Quarter: 2014Q1

REPORT INFORMATION
  Report Type: Spontaneous
  Country: US (occurrence: None)
  Receive Date: 20140116
  Receipt Date: 20140116
  Transmission Date: 20141002
  Serious: Yes (Hospitalization)
  Sender: FDA-Public Use
  Company Number: None

PATIENT
  Age: 70 Year
  Sex: Female

DRUGS (9)
  1. ENBREL [Suspect]
     Route: 058
     Dates: start: 20130324
  2. COUMADIN [Concomitant]
  3. FLUOXETINE [Concomitant]
  4. AMITRIPTYLINE [Concomitant]
  5. BENADRYL [Concomitant]
  6. BUPROPION [Concomitant]
  7. CALCIUM +D [Concomitant]
  8. SULFASALAZINE [Concomitant]
  9. SORIATANE [Concomitant]

REACTIONS (1)
  - Pneumonia [None]
